FAERS Safety Report 6545869-X (Version None)
Quarter: 2010Q1

REPORT INFORMATION
  Report Type: 
  Country: None (occurrence: None)
  Receive Date: 20100121
  Receipt Date: 20090423
  Transmission Date: 20100710
  Serious: No
  Sender: FDA-Public Use
  Company Number: US-ALLERGAN-0905714US

PATIENT
  Age: 59 Year
  Sex: Male

DRUGS (1)
  1. TAZORAC [Suspect]
     Indication: ACNE
     Dosage: UNK, SINGLE
     Route: 061
     Dates: start: 20090420, end: 20090420

REACTIONS (3)
  - DRY SKIN [None]
  - PARAESTHESIA [None]
  - SKIN EXFOLIATION [None]
